FAERS Safety Report 6612265-6 (Version None)
Quarter: 2010Q1

REPORT INFORMATION
  Report Type: 
  Country: None (occurrence: None)
  Receive Date: 20100223
  Receipt Date: 20090728
  Transmission Date: 20100710
  Serious: Yes (Disabling)
  Sender: FDA-Public Use
  Company Number: WAES 0907USA05099

PATIENT
  Age: 48 Year
  Sex: Male
  Weight: 92.9874 kg

DRUGS (1)
  1. PROPECIA [Suspect]
     Indication: ALOPECIA
     Dosage: 1 MG/DAILY/PO
     Route: 048
     Dates: start: 20080728, end: 20081030

REACTIONS (1)
  - ERECTILE DYSFUNCTION [None]
